FAERS Safety Report 20179843 (Version 1)
Quarter: 2021Q4

REPORT INFORMATION
  Report Type: Other
  Country: GB (occurrence: GB)
  Receive Date: 20211214
  Receipt Date: 20211214
  Transmission Date: 20220303
  Serious: Yes (Other)
  Sender: FDA-Public Use
  Company Number: None

PATIENT
  Sex: Female
  Weight: 54.88 kg

DRUGS (6)
  1. MEFENAMIC ACID [Suspect]
     Active Substance: MEFENAMIC ACID
     Indication: Heavy menstrual bleeding
     Dosage: UNK
     Route: 048
  2. MEFENAMIC ACID [Suspect]
     Active Substance: MEFENAMIC ACID
     Dosage: 1500 MILLIGRAM, PERDAY
     Route: 048
     Dates: start: 20211127, end: 20211127
  3. FERROUS GLUCONATE [Concomitant]
     Active Substance: FERROUS GLUCONATE
     Indication: Product used for unknown indication
     Dosage: UNK
     Route: 065
  4. FOLIC ACID [Concomitant]
     Active Substance: FOLIC ACID
     Indication: Product used for unknown indication
     Dosage: UNK
     Route: 065
  5. PROPRANOLOL HYDROCHLORIDE [Concomitant]
     Active Substance: PROPRANOLOL HYDROCHLORIDE
     Indication: Product used for unknown indication
     Dosage: 80 MILLIGRAM
     Route: 065
  6. SERTRALINE HYDROCHLORIDE [Concomitant]
     Active Substance: SERTRALINE HYDROCHLORIDE
     Indication: Product used for unknown indication
     Dosage: UNK
     Route: 065

REACTIONS (12)
  - Genital burning sensation [Recovered/Resolved]
  - Genital swelling [Recovered/Resolved]
  - Tongue discomfort [Recovered/Resolved]
  - Application site ulcer [Recovered/Resolved]
  - Paraesthesia oral [Recovered/Resolved]
  - Paraesthesia oral [Recovered/Resolved]
  - Mouth ulceration [Recovered/Resolved]
  - Mouth swelling [Recovered/Resolved]
  - Pharyngeal swelling [Unknown]
  - Peripheral swelling [Not Recovered/Not Resolved]
  - Paraesthesia [Recovered/Resolved]
  - Blister [Recovered/Resolved]

NARRATIVE: CASE EVENT DATE: 20211127
